FAERS Safety Report 15245389 (Version 2)
Quarter: 2018Q3

REPORT INFORMATION
  Report Type: Spontaneous
  Country: CN (occurrence: CN)
  Receive Date: 20180806
  Receipt Date: 20180820
  Transmission Date: 20181010
  Serious: Yes (Hospitalization)
  Sender: FDA-Public Use
  Company Number: CN-ASTRAZENECA-2018SE99197

PATIENT
  Sex: Female

DRUGS (1)
  1. OLAPARIB. [Suspect]
     Active Substance: OLAPARIB
     Dosage: 800 (UNIT AND FREQUENCY WERE NOT REPORTED)
     Route: 048
     Dates: start: 20180706, end: 20180714

REACTIONS (1)
  - Renal failure [Recovered/Resolved]
